FAERS Safety Report 16001085 (Version 1)
Quarter: 2019Q1

REPORT INFORMATION
  Report Type: Spontaneous
  Country: JP (occurrence: JP)
  Receive Date: 20190225
  Receipt Date: 20190225
  Transmission Date: 20190418
  Serious: Yes (Other)
  Sender: FDA-Public Use
  Company Number: JP-PFIZER INC-2019075804

PATIENT

DRUGS (3)
  1. MUCOSTA [Concomitant]
     Active Substance: REBAMIPIDE
     Dosage: UNK
     Route: 048
  2. CELECOX [Suspect]
     Active Substance: CELECOXIB
     Indication: BACK PAIN
     Dosage: 200 MG, DAILY
     Route: 048
  3. CELECOX [Suspect]
     Active Substance: CELECOXIB
     Indication: ARTHRALGIA

REACTIONS (1)
  - Osteonecrosis [Unknown]
